FAERS Safety Report 7323002-4 (Version None)
Quarter: 2011Q1

REPORT INFORMATION
  Report Type: 
  Country: None (occurrence: None)
  Receive Date: 20110301
  Receipt Date: 20090614
  Transmission Date: 20110831
  Serious: Yes (Hospitalization, Other)
  Sender: FDA-Public Use
  Company Number: US-BAYER-200923338NA

PATIENT
  Sex: Male
  Weight: 83.9 kg

DRUGS (34)
  1. ALBUMIN (HUMAN) [Concomitant]
     Dosage: UNK
     Route: 042
     Dates: start: 20041006
  2. ASPIRIN [Concomitant]
     Dosage: 325 MG, UNK
     Route: 048
     Dates: start: 20041005
  3. ATIVAN [Concomitant]
     Dosage: 1M
     Route: 065
     Dates: start: 20041006
  4. NIPRIDE [Concomitant]
     Dosage: 100 MG/250 ML
     Route: 042
     Dates: start: 20041006
  5. PRINIVIL [Concomitant]
     Dosage: 10 MG, UNK
     Route: 065
  6. ACETAMINOPHEN [Concomitant]
     Dosage: 650 MG, UNK
     Route: 048
     Dates: start: 20041005
  7. ANCEF [Concomitant]
     Dosage: 50 ML/100/ML
     Route: 042
     Dates: start: 20041004, end: 20041005
  8. LEVAQUIN [Concomitant]
     Dosage: 500 MG, UNK
     Route: 065
     Dates: start: 20041004, end: 20041005
  9. LOPRESSOR [Concomitant]
     Dosage: 25 MG, UNK
     Dates: start: 20041006
  10. PHENYLEPHRINE [Concomitant]
     Dosage: 20MCG
     Route: 065
     Dates: start: 20041006
  11. PROPOFOL [Concomitant]
     Dosage: UNK
     Route: 042
     Dates: start: 20041005
  12. ATROVENT [Concomitant]
     Dosage: 0.5 MG, UNK
     Route: 055
     Dates: start: 20041006, end: 20041105
  13. LISINOPRIL [Concomitant]
     Dosage: 5 MG, UNK
     Route: 065
     Dates: start: 20041007
  14. VERSED [Concomitant]
     Dosage: UNK
     Route: 042
     Dates: start: 20041005, end: 20041005
  15. HEPARIN [Concomitant]
     Dosage: UNK
     Route: 042
     Dates: start: 20041005, end: 20041005
  16. ASPIRIN [Concomitant]
     Dosage: 81 MG, UNK
     Route: 048
     Dates: start: 20041005
  17. LOPRESSOR [Concomitant]
     Dosage: 12.5 MG, UNK
     Route: 065
     Dates: start: 20041006
  18. MEFLOQUINE HYDROCHLORIDE [Concomitant]
     Dosage: 750 MG, UNK
     Route: 065
     Dates: start: 20041007
  19. TERAZOSIN [Concomitant]
     Dosage: 10 MG, UNK
     Route: 065
     Dates: start: 20041006
  20. INSULIN [Concomitant]
     Dosage: UNK
     Route: 042
     Dates: start: 20041005, end: 20041005
  21. ACTOS [Concomitant]
     Dosage: 30 MG, UNK
     Route: 048
     Dates: start: 20041007, end: 20041106
  22. LOPRESSOR [Concomitant]
     Dosage: 50 MG, UNK
     Dates: start: 20041006
  23. PRIMAXIN [Concomitant]
     Dosage: 500 MG, UNK
     Route: 065
     Dates: start: 20041006, end: 20041020
  24. VANCOMYCIN [Concomitant]
     Dosage: 750 MG, UNK
     Route: 042
     Dates: start: 20041006, end: 20041020
  25. DOBUTAMINE HCL [Concomitant]
     Dosage: UNK
     Route: 042
     Dates: start: 20041005
  26. TRASYLOL [Suspect]
     Indication: CORONARY ARTERY BYPASS
     Dosage: 50 ML/HR, PUMP PRIME OF 2 MILLION KIU [200 CC]
     Route: 042
     Dates: start: 20041005, end: 20041005
  27. AMIODARONE [Concomitant]
     Dosage: 200-400 MG
     Route: 042
     Dates: start: 20041008
  28. NITROGLYCERIN [Concomitant]
     Dosage: UNK
     Route: 042
     Dates: start: 20041006
  29. XOPENEX [Concomitant]
     Dosage: 1.25 MG, UNK
     Route: 065
     Dates: start: 20041006, end: 20041105
  30. TRASYLOL [Suspect]
     Indication: AORTIC VALVE REPLACEMENT
     Dosage: 400 ML, ONCE
     Route: 042
     Dates: start: 20041005, end: 20041005
  31. BENADRYL [Concomitant]
     Dosage: 25 MG, UNK
     Route: 065
     Dates: start: 20041006
  32. NITROGLYCERIN [Concomitant]
     Dosage: 0.6 MG, UNK
     Route: 003
     Dates: start: 20041007, end: 20041106
  33. LEVOPHED [Concomitant]
     Dosage: UNK
     Route: 042
     Dates: start: 20041005, end: 20041005
  34. PROTAMINE SULFATE [Concomitant]
     Dosage: UNK
     Route: 042
     Dates: start: 20041005, end: 20041005

REACTIONS (10)
  - RENAL FAILURE CHRONIC [None]
  - ANXIETY [None]
  - UNEVALUABLE EVENT [None]
  - INJURY [None]
  - FEAR [None]
  - ANHEDONIA [None]
  - DEPRESSION [None]
  - RENAL FAILURE [None]
  - EMOTIONAL DISTRESS [None]
  - PAIN [None]
